FAERS Safety Report 5347735-4 (Version None)
Quarter: 2007Q2

REPORT INFORMATION
  Report Type: 
  Country: None (occurrence: None)
  Receive Date: 20070606
  Receipt Date: 20070530
  Transmission Date: 20071010
  Serious: No
  Sender: FDA-Public Use
  Company Number: ES-BAXTER-2007BH004784

PATIENT
  Sex: Male

DRUGS (1)
  1. ANTIHEMOPHILIC FACTOR (HUMAN) [Suspect]
     Indication: DRUG USE FOR UNKNOWN INDICATION
     Dosage: DOSE UNIT:UNKNOWN
     Route: 042

REACTIONS (1)
  - FACTOR VIII INHIBITION [None]
